FAERS Safety Report 7167317-1 (Version None)
Quarter: 2010Q4

REPORT INFORMATION
  Report Type: 
  Country: None (occurrence: None)
  Receive Date: 20101216
  Receipt Date: 20101202
  Transmission Date: 20110411
  Serious: Yes (Other)
  Sender: FDA-Public Use
  Company Number: US-WATSON-2010-15883

PATIENT
  Sex: Female

DRUGS (2)
  1. SULINDAC (WATSON LABORATORIES) [Suspect]
     Indication: DESMOID TUMOUR
     Dosage: UNK
     Route: 048
     Dates: start: 20091001
  2. RANITIDINE HYDROCHLORIDE [Suspect]
     Indication: DESMOID TUMOUR
     Dosage: UNK
     Route: 048
     Dates: start: 20091001

REACTIONS (3)
  - DIARRHOEA [None]
  - DRUG TOXICITY [None]
  - RASH [None]
